FAERS Safety Report 12171075 (Version 1)
Quarter: 2016Q1

REPORT INFORMATION
  Report Type: Spontaneous
  Country: US (occurrence: US)
  Receive Date: 20160311
  Receipt Date: 20160311
  Transmission Date: 20160526
  Serious: Yes (Congenital Anomaly, Other)
  Sender: FDA-Public Use
  Company Number: PHEH2016US005727

PATIENT
  Sex: Male

DRUGS (2)
  1. ZOFRAN [Suspect]
     Active Substance: ONDANSETRON HYDROCHLORIDE
     Indication: FOETAL EXPOSURE DURING PREGNANCY
     Dosage: UNK
     Route: 064
  2. ONDANSETRON [Suspect]
     Active Substance: ONDANSETRON
     Indication: PRODUCT USED FOR UNKNOWN INDICATION
     Dosage: UNK
     Route: 064

REACTIONS (26)
  - Atrial septal defect [Unknown]
  - Speech disorder [Unknown]
  - Dyspnoea [Unknown]
  - Patent ductus arteriosus [Unknown]
  - Congenital musculoskeletal anomaly [Unknown]
  - Craniosynostosis [Unknown]
  - Hemivertebra [Unknown]
  - Dysmorphism [Unknown]
  - Tethered cord syndrome [Unknown]
  - Anxiety [Unknown]
  - Congenital scoliosis [Unknown]
  - Anal atresia [Unknown]
  - Emotional distress [Unknown]
  - Visual impairment [Unknown]
  - Congenital anomaly [Unknown]
  - Foetal exposure during pregnancy [Unknown]
  - Injury [Unknown]
  - Ventricular septal defect [Unknown]
  - Cleft palate [Unknown]
  - Developmental delay [Unknown]
  - Congenital pulmonary hypertension [Unknown]
  - Premature baby [Unknown]
  - Insomnia [Unknown]
  - Eating disorder [Unknown]
  - Pain [Unknown]
  - Hypoacusis [Unknown]

NARRATIVE: CASE EVENT DATE: 201204
